FAERS Safety Report 8350931-5 (Version None)
Quarter: 2012Q2

REPORT INFORMATION
  Report Type: 
  Country: None (occurrence: None)
  Receive Date: 20120510
  Receipt Date: 20101112
  Transmission Date: 20120825
  Serious: No
  Sender: FDA-Public Use
  Company Number: US-TEVA-2010005920

PATIENT
  Sex: Female
  Weight: 61.29 kg

DRUGS (1)
  1. NUVIGIL [Suspect]
     Indication: FATIGUE
     Dosage: 50 MILLIGRAM;
     Route: 048
     Dates: start: 20101101, end: 20101110

REACTIONS (6)
  - LIP PAIN [None]
  - RASH PRURITIC [None]
  - EYE PRURITUS [None]
  - RASH PAPULAR [None]
  - DRUG INEFFECTIVE FOR UNAPPROVED INDICATION [None]
  - DIZZINESS [None]
